FAERS Safety Report 11917956 (Version 1)
Quarter: 2016Q1

REPORT INFORMATION
  Report Type: Spontaneous
  Country: SE (occurrence: SE)
  Receive Date: 20160114
  Receipt Date: 20160114
  Transmission Date: 20160526
  Serious: Yes (Disabling)
  Sender: FDA-Public Use
  Company Number: SE-TEVA-625719ISR

PATIENT
  Age: 77 Year
  Sex: Female

DRUGS (1)
  1. SERTRALINE [Suspect]
     Active Substance: SERTRALINE HYDROCHLORIDE
     Route: 048

REACTIONS (1)
  - Interstitial lung disease [Not Recovered/Not Resolved]
